FAERS Safety Report 6916049-0 (Version None)
Quarter: 2010Q3

REPORT INFORMATION
  Report Type: 
  Country: None (occurrence: None)
  Receive Date: 20100810
  Receipt Date: 20100730
  Transmission Date: 20110219
  Serious: Yes (Other)
  Sender: FDA-Public Use
  Company Number: JP-BIOGENIDEC-2010BI026930

PATIENT
  Age: 28 Year
  Sex: Female

DRUGS (6)
  1. AVONEX [Suspect]
     Indication: RELAPSING-REMITTING MULTIPLE SCLEROSIS
     Route: 030
     Dates: start: 20070706, end: 20070713
  2. AVONEX [Suspect]
     Route: 030
     Dates: start: 20070719, end: 20071119
  3. AVONEX [Suspect]
     Route: 030
     Dates: start: 20080901
  4. MUCOSTA [Concomitant]
     Dates: start: 20070713
  5. MUCOSTA [Concomitant]
  6. LOXONIN [Concomitant]
     Dates: start: 20070807

REACTIONS (2)
  - CAESAREAN SECTION [None]
  - DRUG EXPOSURE DURING PREGNANCY [None]
